FAERS Safety Report 17457321 (Version 1)
Quarter: 2020Q1

REPORT INFORMATION
  Report Type: Report from Study
  Country: None (occurrence: US)
  Receive Date: 20200225
  Receipt Date: 20200225
  Transmission Date: 20200409
  Serious: Yes (Other)
  Sender: FDA-Public Use
  Company Number: US-ABBVIE-20K-163-3287964-00

PATIENT
  Sex: Female

DRUGS (1)
  1. HUMIRA [Suspect]
     Active Substance: ADALIMUMAB
     Indication: CROHN^S DISEASE
     Dosage: CITRATE FREE
     Route: 058

REACTIONS (8)
  - Stress [Recovering/Resolving]
  - Hernia [Unknown]
  - Gastritis [Unknown]
  - Large intestine polyp [Unknown]
  - Gastrooesophageal reflux disease [Recovering/Resolving]
  - Diverticulitis [Unknown]
  - Trigeminal neuralgia [Unknown]
  - Facial paralysis [Unknown]

NARRATIVE: CASE EVENT DATE: 2018
